FAERS Safety Report 9114963 (Version 1)
Quarter: 2013Q1

REPORT INFORMATION
  Report Type: Spontaneous
  Country: US (occurrence: None)
  Receive Date: 20130220
  Receipt Date: 20130220
  Transmission Date: 20140127
  Serious: No
  Sender: FDA-Public Use
  Company Number: None

PATIENT
  Age: 54 Year
  Sex: Female
  Weight: 51.26 kg

DRUGS (2)
  1. RESTASIS [Suspect]
     Indication: DRY EYE
     Dosage: 1 DROP  2/DAY  OPHTHALMIC
     Route: 047
     Dates: start: 20130110, end: 20130225
  2. ESTRADIO/NORETHINDRONE ACETATE [Concomitant]

REACTIONS (2)
  - Oral candidiasis [None]
  - Product taste abnormal [None]
